FAERS Safety Report 23521552 (Version 1)
Quarter: 2024Q1

REPORT INFORMATION
  Report Type: Other
  Country: US (occurrence: US)
  Receive Date: 20240214
  Receipt Date: 20240214
  Transmission Date: 20240410
  Serious: Yes (Other)
  Sender: FDA-Public Use
  Company Number: US-APOTEX-2024AP000800

PATIENT
  Age: 54 Year
  Sex: Female

DRUGS (2)
  1. LENALIDOMIDE [Suspect]
     Active Substance: LENALIDOMIDE
     Indication: Plasma cell myeloma
     Dosage: 7.5 MILLIGRAM
     Route: 065
  2. LENALIDOMIDE [Suspect]
     Active Substance: LENALIDOMIDE
     Dosage: 10 MILLIGRAM (21 IN 28 DAY)
     Route: 065

REACTIONS (1)
  - Human chorionic gonadotropin increased [Not Recovered/Not Resolved]
